FAERS Safety Report 20332942 (Version 1)
Quarter: 2022Q1

REPORT INFORMATION
  Report Type: Spontaneous
  Country: CA (occurrence: CA)
  Receive Date: 20220113
  Receipt Date: 20220113
  Transmission Date: 20220423
  Serious: Yes (Hospitalization)
  Sender: FDA-Public Use
  Company Number: CA-ELI_LILLY_AND_COMPANY-CA202201002468

PATIENT
  Age: 29 Year
  Sex: Male

DRUGS (1)
  1. HUMALOG [Suspect]
     Active Substance: INSULIN LISPRO
     Indication: Product used for unknown indication
     Dosage: UNK UNK, UNKNOWN
     Route: 065

REACTIONS (8)
  - Blood creatinine decreased [Unknown]
  - Pallor [Unknown]
  - Hydronephrosis [Unknown]
  - Back pain [Unknown]
  - Nausea [Unknown]
  - Blood glucose increased [Unknown]
  - Asthenia [Unknown]
  - Fatigue [Unknown]
